FAERS Safety Report 4781755-3 (Version None)
Quarter: 2005Q3

REPORT INFORMATION
  Report Type: 
  Country: None (occurrence: None)
  Receive Date: 20050927
  Receipt Date: 20050912
  Transmission Date: 20060218
  Serious: Yes (Other)
  Sender: FDA-Public Use
  Company Number: USA0509108217

PATIENT
  Sex: Female

DRUGS (1)
  1. CYMBALTA [Suspect]
     Dosage: 60 MG

REACTIONS (3)
  - AKATHISIA [None]
  - EXTRAPYRAMIDAL DISORDER [None]
  - PARKINSONISM [None]
